FAERS Safety Report 5293709-1 (Version None)
Quarter: 2007Q2

REPORT INFORMATION
  Report Type: 
  Country: None (occurrence: None)
  Receive Date: 20070405
  Receipt Date: 20070323
  Transmission Date: 20071010
  Serious: Yes (Other)
  Sender: FDA-Public Use
  Company Number: US019680

PATIENT
  Sex: Female

DRUGS (3)
  1. MODIODAL [Suspect]
     Dosage: 100 MG BID ORAL
     Route: 048
  2. EFFEXOR [Concomitant]
  3. REMERON [Concomitant]

REACTIONS (3)
  - CONVULSION [None]
  - EPILEPSY [None]
  - NEOPLASM [None]
